FAERS Safety Report 7992055-2 (Version None)
Quarter: 2011Q4

REPORT INFORMATION
  Report Type: 
  Country: None (occurrence: None)
  Receive Date: 20111219
  Receipt Date: 20110822
  Transmission Date: 20120403
  Serious: No
  Sender: FDA-Public Use
  Company Number: US-ASTRAZENECA-2011SE50553

PATIENT
  Age: 62 Year
  Sex: Female
  Weight: 55.3 kg

DRUGS (8)
  1. DEXILANT [Concomitant]
     Route: 065
  2. ASPIRIN [Concomitant]
     Route: 065
  3. HYDROCODONE [Concomitant]
     Route: 065
  4. CRESTOR [Suspect]
     Route: 048
     Dates: start: 20100901
  5. SOMA [Concomitant]
     Route: 065
  6. BC POWDER [Concomitant]
     Route: 065
  7. NEURONTIN [Concomitant]
     Route: 065
  8. ATENOLOL [Concomitant]
     Route: 065

REACTIONS (3)
  - BACK PAIN [None]
  - MYALGIA [None]
  - CHEST PAIN [None]
